FAERS Safety Report 6847085-0 (Version None)
Quarter: 2010Q3

REPORT INFORMATION
  Report Type: 
  Country: None (occurrence: None)
  Receive Date: 20100716
  Receipt Date: 20100708
  Transmission Date: 20110219
  Serious: No
  Sender: FDA-Public Use
  Company Number: US-BIOGENIDEC-2010BI023466

PATIENT
  Age: 54 Year
  Sex: Male

DRUGS (2)
  1. TYSABRI [Suspect]
     Indication: MULTIPLE SCLEROSIS
     Route: 042
     Dates: start: 20050117, end: 20050101
  2. TYSABRI [Suspect]
     Route: 042
     Dates: start: 20060830

REACTIONS (2)
  - EAR INFECTION [None]
  - PHARYNGITIS STREPTOCOCCAL [None]
